FAERS Safety Report 5701110-9 (Version None)
Quarter: 2008Q2

REPORT INFORMATION
  Report Type: 
  Country: None (occurrence: None)
  Receive Date: 20080410
  Receipt Date: 20080327
  Transmission Date: 20081010
  Serious: Yes (Other)
  Sender: FDA-Public Use
  Company Number: FR-AMGEN-UK272119

PATIENT
  Sex: Male

DRUGS (4)
  1. NEUPOGEN [Suspect]
     Indication: CHEMOTHERAPY
     Route: 042
     Dates: start: 20071009, end: 20071120
  2. BLEOMYCIN SULFATE [Suspect]
     Route: 065
     Dates: start: 20070814, end: 20071120
  3. ADRIAMYCIN PFS [Concomitant]
     Route: 065
     Dates: start: 20070801
  4. DEXAMETHASONE [Concomitant]
     Route: 065
     Dates: start: 20070801

REACTIONS (1)
  - LUNG DISORDER [None]
